FAERS Safety Report 5339571-X (Version None)
Quarter: 2007Q2

REPORT INFORMATION
  Report Type: 
  Country: None (occurrence: None)
  Receive Date: 20070521
  Receipt Date: 20070510
  Transmission Date: 20071010
  Serious: Yes (Hospitalization)
  Sender: FDA-Public Use
  Company Number: B0471250A

PATIENT
  Age: 15 Year
  Sex: Male
  Weight: 41.9124 kg

DRUGS (5)
  1. DIGOXIN [Suspect]
     Indication: CARDIAC FAILURE CONGESTIVE
     Dosage: .25 MG / PER DAY
  2. SPIRONOLACTONE [Concomitant]
  3. SILDENAFIL CITRATE [Concomitant]
  4. ENALAPRIL MALEATE [Concomitant]
  5. NIFEDIPINE [Concomitant]

REACTIONS (12)
  - ATRIOVENTRICULAR BLOCK SECOND DEGREE [None]
  - CARDIOMEGALY [None]
  - EXTRASYSTOLES [None]
  - HEADACHE [None]
  - HEART RATE DECREASED [None]
  - NAUSEA [None]
  - PLEURAL EFFUSION [None]
  - RESPIRATORY RATE INCREASED [None]
  - SCOTOMA [None]
  - THERAPEUTIC AGENT TOXICITY [None]
  - VENTRICULAR EXTRASYSTOLES [None]
  - VOMITING [None]
